FAERS Safety Report 17789285 (Version 1)
Quarter: 2020Q2

REPORT INFORMATION
  Report Type: Report from Study
  Country: DE (occurrence: DE)
  Receive Date: 20200515
  Receipt Date: 20200515
  Transmission Date: 20200714
  Serious: Yes (Death)
  Sender: FDA-Public Use
  Company Number: DE-ROCHE-2601409

PATIENT
  Age: 70 Year
  Sex: Male

DRUGS (7)
  1. VINCRISTINE [Suspect]
     Active Substance: VINCRISTINE
     Indication: EPSTEIN-BARR VIRUS ASSOCIATED LYMPHOMA
     Route: 065
  2. CYCLOPHOSPHAMIDE. [Suspect]
     Active Substance: CYCLOPHOSPHAMIDE
     Indication: EPSTEIN-BARR VIRUS ASSOCIATED LYMPHOMA
     Route: 065
  3. OXALIPLATIN. [Suspect]
     Active Substance: OXALIPLATIN
     Indication: EPSTEIN-BARR VIRUS ASSOCIATED LYMPHOMA
     Dosage: UNK UNK, CYCLIC
     Route: 065
  4. PREDNISOLONE. [Suspect]
     Active Substance: PREDNISOLONE
     Indication: EPSTEIN-BARR VIRUS ASSOCIATED LYMPHOMA
     Route: 065
  5. GEMCITABINE. [Suspect]
     Active Substance: GEMCITABINE
     Indication: EPSTEIN-BARR VIRUS ASSOCIATED LYMPHOMA
     Dosage: UNK UNK, CYCLIC
     Route: 065
  6. DOXORUBICINE [DOXORUBICIN] [Suspect]
     Active Substance: DOXORUBICIN
     Indication: EPSTEIN-BARR VIRUS ASSOCIATED LYMPHOMA
     Route: 065
  7. RITUXIMAB. [Suspect]
     Active Substance: RITUXIMAB
     Indication: EPSTEIN-BARR VIRUS ASSOCIATED LYMPHOMA
     Route: 065

REACTIONS (2)
  - Sepsis [Fatal]
  - Multiple organ dysfunction syndrome [Fatal]
